FAERS Safety Report 6979731-5 (Version None)
Quarter: 2010Q3

REPORT INFORMATION
  Report Type: 
  Country: None (occurrence: None)
  Receive Date: 20100913
  Receipt Date: 20100903
  Transmission Date: 20110219
  Serious: Yes (Death)
  Sender: FDA-Public Use
  Company Number: US-ABBOTT-10P-163-0663829-00

PATIENT
  Sex: Male
  Weight: 80.8 kg

DRUGS (14)
  1. NIASPAN [Suspect]
     Indication: BLOOD CHOLESTEROL INCREASED
     Dates: start: 20050101, end: 20060501
  2. NIASPAN [Suspect]
     Dates: start: 20060501
  3. NIASPAN [Suspect]
     Route: 048
     Dates: start: 20091111, end: 20100624
  4. CELEBREX [Concomitant]
     Indication: PRODUCT USED FOR UNKNOWN INDICATION
  5. NEURONTIN [Concomitant]
     Indication: PRODUCT USED FOR UNKNOWN INDICATION
  6. ASPIRIN [Concomitant]
     Indication: PRODUCT USED FOR UNKNOWN INDICATION
  7. PLAVIX [Concomitant]
     Indication: PRODUCT USED FOR UNKNOWN INDICATION
  8. VYTORIN [Concomitant]
     Indication: PRODUCT USED FOR UNKNOWN INDICATION
  9. AVANDARYL [Concomitant]
     Indication: DIABETES MELLITUS
  10. JANUMET [Concomitant]
     Indication: DIABETES MELLITUS
  11. METOPROLOL TARTRATE [Concomitant]
     Indication: PRODUCT USED FOR UNKNOWN INDICATION
  12. VITAMIN B-12 [Concomitant]
     Indication: PRODUCT USED FOR UNKNOWN INDICATION
  13. PREVACID [Concomitant]
     Indication: PRODUCT USED FOR UNKNOWN INDICATION
  14. POTASSIUM [Concomitant]
     Indication: PRODUCT USED FOR UNKNOWN INDICATION

REACTIONS (10)
  - ACUTE MYOCARDIAL INFARCTION [None]
  - BACK PAIN [None]
  - CHEST PAIN [None]
  - ENDOCARDITIS [None]
  - HAEMORRHAGE INTRACRANIAL [None]
  - HYPOTENSION [None]
  - MUSCULAR WEAKNESS [None]
  - PARAPLEGIA [None]
  - RESPIRATORY FAILURE [None]
  - SPINAL HAEMATOMA [None]
